FAERS Safety Report 17800042 (Version 2)
Quarter: 2020Q3

REPORT INFORMATION
  Report Type: Report from Study
  Country: None (occurrence: CA)
  Receive Date: 20200518
  Receipt Date: 20200716
  Transmission Date: 20201102
  Serious: Yes (Death, Hospitalization, Other)
  Sender: FDA-Public Use
  Company Number: CA-ABBVIE-20K-028-3406427-00

PATIENT
  Age: 77 Year
  Sex: Male

DRUGS (4)
  1. LUPRON DEPOT [Suspect]
     Active Substance: LEUPROLIDE ACETATE
     Indication: PROSTATE CANCER
     Route: 030
     Dates: start: 2017
  2. LUPRON DEPOT [Suspect]
     Active Substance: LEUPROLIDE ACETATE
     Route: 030
     Dates: start: 20180206, end: 20200212
  3. TYLENOL [Concomitant]
     Active Substance: ACETAMINOPHEN
     Indication: PAIN
     Dosage: EXTRA STRENGTH?AS NEEDED
  4. LORAZEPAM. [Concomitant]
     Active Substance: LORAZEPAM
     Indication: ANXIETY
     Dosage: AT BEDTIME

REACTIONS (6)
  - Blood count abnormal [Unknown]
  - Crohn^s disease [Unknown]
  - Osteolysis [Unknown]
  - Arrhythmia [Fatal]
  - Plasma cell myeloma [Unknown]
  - Anaemia [Unknown]

NARRATIVE: CASE EVENT DATE: 20200505
